FAERS Safety Report 25528649 (Version 1)
Quarter: 2025Q3

REPORT INFORMATION
  Report Type: Spontaneous
  Country: HK (occurrence: HK)
  Receive Date: 20250708
  Receipt Date: 20250708
  Transmission Date: 20251021
  Serious: Yes (Hospitalization)
  Sender: BAYER HEALTHCARE PHARMACEUTICALS INC.
  Company Number: HK-BAYER-2025A086799

PATIENT
  Sex: Female

DRUGS (1)
  1. YAZ [Suspect]
     Active Substance: DROSPIRENONE\ETHINYL ESTRADIOL
     Route: 048

REACTIONS (7)
  - Angina pectoris [None]
  - Pleurisy [None]
  - Haemoptysis [None]
  - Initial insomnia [None]
  - Pyrexia [None]
  - Feeding disorder [None]
  - Pulmonary imaging procedure abnormal [None]
